FAERS Safety Report 9499596 (Version 1)
Quarter: 2013Q1

REPORT INFORMATION
  Report Type: Spontaneous
  Country: US (occurrence: None)
  Receive Date: 20130124
  Receipt Date: 20130124
  Transmission Date: 20140127
  Serious: No
  Sender: FDA-Public Use
  Company Number: 2012PROUSA02140

PATIENT
  Age: 75 Year
  Sex: Male
  Weight: 65.3 kg

DRUGS (6)
  1. PROVENGE (SIPULEUCEL-T) SUSPENSION, 250ML [Suspect]
     Indication: PROSTATE CANCER METASTATIC
     Dosage: 250ML, SINGLE, INTRAVENOUS
     Route: 042
     Dates: start: 20120924, end: 20120924
  2. VITAMIN B COMPLEX (VITAMIN B COMPLEX) [Concomitant]
  3. BICALUTAMIDE (BICALUTAMIDE) [Concomitant]
  4. MAGNESIUM (MAGNESIUM GLUCONATE) [Concomitant]
  5. METFORMIN HYDROCHLORIDE (METFORMIN HYDROCHLORIDE) [Concomitant]
  6. AMARYL (GLIMEPIRIDE) [Concomitant]

REACTIONS (1)
  - Disease progression [None]
